FAERS Safety Report 13849165 (Version 1)
Quarter: 2017Q3

REPORT INFORMATION
  Report Type: Spontaneous
  Country: US (occurrence: US)
  Receive Date: 20170809
  Receipt Date: 20170809
  Transmission Date: 20171127
  Serious: No
  Sender: FDA-Public Use
  Company Number: US-ELI_LILLY_AND_COMPANY-US201707004984

PATIENT
  Sex: Female

DRUGS (1)
  1. TERIPARATIDE 250UG/ML [Suspect]
     Active Substance: TERIPARATIDE
     Indication: OSTEOPOROSIS
     Dosage: 20 UG, DAILY
     Route: 065

REACTIONS (2)
  - Fracture [Recovered/Resolved]
  - Compression fracture [Recovered/Resolved]

NARRATIVE: CASE EVENT DATE: 20170711
